FAERS Safety Report 5814783-7 (Version None)
Quarter: 2008Q3

REPORT INFORMATION
  Report Type: 
  Country: None (occurrence: None)
  Receive Date: 20080715
  Receipt Date: 20080707
  Transmission Date: 20090109
  Serious: Yes (Congenital Anomaly)
  Sender: FDA-Public Use
  Company Number: GXKR2008GB06320

PATIENT

DRUGS (2)
  1. METFORMIN HCL [Suspect]
     Dosage: TRANSPLACENTAL
     Route: 064
     Dates: end: 20080401
  2. FOLIC ACID [Concomitant]

REACTIONS (3)
  - HYPOPLASTIC LEFT HEART SYNDROME [None]
  - MATERNAL DRUGS AFFECTING FOETUS [None]
  - TERATOGENICITY [None]
